FAERS Safety Report 18255988 (Version 2)
Quarter: 2024Q3

REPORT INFORMATION
  Report Type: Report from Study
  Country: DK (occurrence: DK)
  Receive Date: 20200910
  Receipt Date: 20240729
  Transmission Date: 20241017
  Serious: Yes (Other)
  Sender: ROCHE
  Company Number: DK-ROCHE-2669109

PATIENT
  Age: 57 Year
  Sex: Male

DRUGS (2)
  1. ALECTINIB [Suspect]
     Active Substance: ALECTINIB
     Indication: Non-small cell lung cancer
     Dosage: 600MG X2
     Route: 048
     Dates: start: 20191009, end: 202007
  2. ALECTINIB [Suspect]
     Active Substance: ALECTINIB
     Dosage: 450MG X2
     Route: 048
     Dates: start: 20200225, end: 20200722

REACTIONS (2)
  - Pleural effusion [Recovering/Resolving]
  - Pericardial effusion [Recovering/Resolving]

NARRATIVE: CASE EVENT DATE: 20200101
